FAERS Safety Report 18044606 (Version 2)
Quarter: 2022Q4

REPORT INFORMATION
  Report Type: Other
  Country: US (occurrence: None)
  Receive Date: 20200720
  Receipt Date: 20221215
  Transmission Date: 20230112
  Serious: Yes (Death)
  Sender: FDA-Public Use
  Company Number: US-ROCHE-2639180

PATIENT

DRUGS (2)
  1. PIMODIVIR [Suspect]
     Active Substance: PIMODIVIR
     Indication: Influenza
     Route: 048
  2. OSELTAMIVIR [Suspect]
     Active Substance: OSELTAMIVIR
     Indication: Influenza
     Route: 065

REACTIONS (1)
  - Cardiac arrest [Fatal]
